FAERS Safety Report 22026946 (Version 2)
Quarter: 2023Q1

REPORT INFORMATION
  Report Type: Spontaneous
  Country: US (occurrence: US)
  Receive Date: 20230223
  Receipt Date: 20230315
  Transmission Date: 20230417
  Serious: Yes (Hospitalization, Other)
  Sender: FDA-Public Use
  Company Number: US-ORGANON-O2302USA001365

PATIENT
  Age: 66 Year
  Sex: Male

DRUGS (4)
  1. UNSPECIFIED INGREDIENT [Suspect]
     Active Substance: UNSPECIFIED INGREDIENT
     Dosage: UNK
  2. COZAAR [Concomitant]
     Active Substance: LOSARTAN POTASSIUM
     Indication: Hypertension
     Dosage: 25 MG, DAILY
     Route: 048
     Dates: start: 201802
  3. WELLBUTRIN [Concomitant]
     Active Substance: BUPROPION HYDROCHLORIDE
     Indication: Depression
     Dosage: 300 MG, DAILY
     Route: 048
     Dates: start: 2015
  4. VIAGRA [Concomitant]
     Active Substance: SILDENAFIL CITRATE
     Indication: Erectile dysfunction
     Dosage: 100 MG, AS NEEDED
     Route: 048
     Dates: start: 2008

REACTIONS (3)
  - Syncope [Recovering/Resolving]
  - Electrocardiogram abnormal [Recovering/Resolving]
  - Bundle branch block left [Recovering/Resolving]

NARRATIVE: CASE EVENT DATE: 20230131
